FAERS Safety Report 12070063 (Version 1)
Quarter: 2016Q1

REPORT INFORMATION
  Report Type: Report from Study
  Country: US (occurrence: US)
  Receive Date: 20160211
  Receipt Date: 20160211
  Transmission Date: 20160526
  Serious: Yes (Hospitalization)
  Sender: FDA-Public Use
  Company Number: US-BAYER-2015-474785

PATIENT
  Age: 59 Year
  Sex: Female

DRUGS (3)
  1. NEXAVAR [Suspect]
     Active Substance: SORAFENIB
     Indication: LIVER DISORDER
     Dosage: 400 MG, BID
     Route: 048
     Dates: start: 20151113, end: 20151116
  2. NEXAVAR [Suspect]
     Active Substance: SORAFENIB
     Indication: LIVER DISORDER
     Dosage: 800 (4X200) MG, QD
     Route: 048
  3. NEXAVAR [Suspect]
     Active Substance: SORAFENIB
     Indication: LIVER DISORDER
     Dosage: 200 MG, QD
     Route: 048
     Dates: start: 201512

REACTIONS (6)
  - Urinary tract infection [Unknown]
  - Nervousness [Recovered/Resolved]
  - Sepsis [Unknown]
  - Nausea [Not Recovered/Not Resolved]
  - Abdominal pain [Not Recovered/Not Resolved]
  - Diarrhoea [Not Recovered/Not Resolved]

NARRATIVE: CASE EVENT DATE: 20151114
